FAERS Safety Report 8823076 (Version 2)
Quarter: 2013Q1

REPORT INFORMATION
  Report Type: Report from Study
  Country: US (occurrence: US)
  Receive Date: 20121003
  Receipt Date: 20130214
  Transmission Date: 20140127
  Serious: Yes (Hospitalization)
  Sender: FDA-Public Use
  Company Number: PHHO2011US00466

PATIENT
  Age: 57 Year
  Sex: Female
  Weight: 53.52 kg

DRUGS (2)
  1. CERTICAN [Suspect]
     Indication: RENAL TRANSPLANT
     Dosage: UNK
     Route: 048
     Dates: start: 20101130
  2. TACROLIMUS [Suspect]

REACTIONS (2)
  - Blood creatinine increased [Not Recovered/Not Resolved]
  - Obstructive uropathy [Not Recovered/Not Resolved]
